FAERS Safety Report 4841329-2 (Version None)
Quarter: 2005Q4

REPORT INFORMATION
  Report Type: 
  Country: None (occurrence: None)
  Receive Date: 20051130
  Receipt Date: 20051121
  Transmission Date: 20060501
  Serious: Yes (Hospitalization)
  Sender: FDA-Public Use
  Company Number: LB-GLAXOSMITHKLINE-B0401291A

PATIENT
  Age: 77 Year
  Sex: Female

DRUGS (2)
  1. AUGMENTIN [Suspect]
     Indication: CELLULITIS
     Dosage: 1.2G SEE DOSAGE TEXT
     Route: 042
     Dates: start: 20051116, end: 20051117
  2. CIPROBAY [Suspect]
     Indication: CELLULITIS
     Dosage: 200MG SEE DOSAGE TEXT
     Route: 042
     Dates: start: 20051116, end: 20051117

REACTIONS (4)
  - DYSPNOEA [None]
  - HYPOTENSION [None]
  - OEDEMA [None]
  - PHARMACEUTICAL PRODUCT COMPLAINT [None]
